FAERS Safety Report 7396603-5 (Version None)
Quarter: 2011Q1

REPORT INFORMATION
  Report Type: 
  Country: None (occurrence: None)
  Receive Date: 20110325
  Receipt Date: 20110117
  Transmission Date: 20110831
  Serious: Yes (Other)
  Sender: FDA-Public Use
  Company Number: 2011-00091

PATIENT
  Age: 72 Year
  Sex: Female
  Weight: 58.514 kg

DRUGS (2)
  1. AMLODIPINE BESYLATE AND BENAZEPRIL HYDROCHLORIDE CAPSULES [Suspect]
     Dosage: 5/10MG (2 IN 1 D), PER ORAL; 4 DOSAGE FORMS (2 DOSAGES FORMS, 2 IN 1 D), ORAL
     Route: 048
     Dates: start: 20110114
  2. AMLODIPINE BESYLATE AND BENAZEPRIL HYDROCHLORIDE CAPSULES [Suspect]
     Dosage: 5/10MG (2 IN 1 D), PER ORAL; 4 DOSAGE FORMS (2 DOSAGES FORMS, 2 IN 1 D), ORAL
     Route: 048
     Dates: start: 20110112

REACTIONS (2)
  - DYSPNOEA [None]
  - CHEST PAIN [None]
